FAERS Safety Report 7024002-4 (Version None)
Quarter: 2010Q4

REPORT INFORMATION
  Report Type: 
  Country: None (occurrence: None)
  Receive Date: 20101001
  Receipt Date: 20100910
  Transmission Date: 20110411
  Serious: Yes (Hospitalization, Other)
  Sender: FDA-Public Use
  Company Number: US-BAYER-201026320NA

PATIENT
  Age: 18 Year
  Sex: Female
  Weight: 109 kg

DRUGS (10)
  1. YASMIN [Suspect]
     Indication: CONTRACEPTION
     Route: 048
     Dates: start: 20071127, end: 20080618
  2. IBUPROFEN [Concomitant]
     Indication: PAIN
     Route: 048
     Dates: start: 20070525
  3. FLEXERIL [Concomitant]
     Indication: MUSCLE SPASMS
     Route: 048
     Dates: start: 20070525
  4. ALBUTEROL INHALER [Concomitant]
     Indication: ASTHMA
     Route: 055
     Dates: start: 20020101, end: 20070101
  5. ALBUTEROL INHALER [Concomitant]
     Route: 055
     Dates: start: 20080204
  6. FLOVENT [Concomitant]
     Indication: ASTHMA
     Route: 055
     Dates: start: 20020101, end: 20070101
  7. FLOVENT [Concomitant]
     Route: 055
     Dates: start: 20080204
  8. ASCORBIC ACID [Concomitant]
     Dates: start: 20000101, end: 20100101
  9. IMITREX [Concomitant]
     Indication: MIGRAINE
     Dates: start: 20080101, end: 20100101
  10. TRINESSA [Concomitant]
     Indication: CONTRACEPTION
     Dates: start: 20080901

REACTIONS (6)
  - ABDOMINAL PAIN UPPER [None]
  - CHOLECYSTITIS CHRONIC [None]
  - GALLBLADDER CHOLESTEROLOSIS [None]
  - GALLBLADDER NON-FUNCTIONING [None]
  - NAUSEA [None]
  - VOMITING [None]
